FAERS Safety Report 22134737 (Version 1)
Quarter: 2023Q1

REPORT INFORMATION
  Report Type: Spontaneous
  Country: CA (occurrence: CA)
  Receive Date: 20230324
  Receipt Date: 20230324
  Transmission Date: 20230417
  Serious: Yes (Other)
  Sender: FDA-Public Use
  Company Number: CA-JNJFOC-20230358912

PATIENT
  Age: 81 Year
  Sex: Female
  Weight: 71 kg

DRUGS (3)
  1. REMICADE [Suspect]
     Active Substance: INFLIXIMAB
     Indication: Rheumatoid arthritis
     Route: 041
  2. INFLIXIMAB [Suspect]
     Active Substance: INFLIXIMAB
     Indication: Rheumatoid arthritis
     Route: 042
  3. CLONIDINE [Concomitant]
     Active Substance: CLONIDINE
     Route: 048

REACTIONS (13)
  - Bronchitis [Not Recovered/Not Resolved]
  - Menopause [Not Recovered/Not Resolved]
  - Crying [Not Recovered/Not Resolved]
  - Hypoaesthesia [Not Recovered/Not Resolved]
  - Poor venous access [Not Recovered/Not Resolved]
  - Cough [Not Recovered/Not Resolved]
  - Hot flush [Not Recovered/Not Resolved]
  - Peripheral swelling [Not Recovered/Not Resolved]
  - Ear infection [Not Recovered/Not Resolved]
  - Pain in extremity [Not Recovered/Not Resolved]
  - Blood pressure decreased [Not Recovered/Not Resolved]
  - Blood pressure abnormal [Not Recovered/Not Resolved]
  - Off label use [Not Recovered/Not Resolved]
